FAERS Safety Report 7320970-1 (Version None)
Quarter: 2011Q1

REPORT INFORMATION
  Report Type: 
  Country: None (occurrence: None)
  Receive Date: 20110228
  Receipt Date: 20110218
  Transmission Date: 20110831
  Serious: Yes (Hospitalization)
  Sender: FDA-Public Use
  Company Number: DE-ROCHE-761482

PATIENT
  Sex: Female
  Weight: 48 kg

DRUGS (5)
  1. TRASTUZUMAB [Suspect]
     Dosage: MAINTAINANCE DOSE, DOSE LEVEL: 6 MG/KG, LAST DOSE PRIOR TO SAE: 19 AUG 2010
     Route: 042
     Dates: start: 20100617
  2. TRASTUZUMAB [Suspect]
     Dosage: FORM: VIALS, LOADING DOSE: 8 MG/KG
     Route: 042
     Dates: start: 20100527
  3. DOCETAXEL [Suspect]
     Dosage: FORM: VIALS, DOSE LEVEL: 75 MG/M2, LAST DOSE PRIOR TO SAE: 19 AUG 2010
     Route: 042
     Dates: start: 20100527
  4. CARBOPLATIN [Suspect]
     Dosage: FORM: VIALS, DOSE LEVEL: 6, UNITS: AUC, LAST DOSE PROIR TO SAE: 19 AUG 2010
     Route: 042
     Dates: start: 20100527
  5. LORAZEPAM [Concomitant]

REACTIONS (1)
  - GENERAL PHYSICAL HEALTH DETERIORATION [None]
